FAERS Safety Report 11458696 (Version 1)
Quarter: 2015Q3

REPORT INFORMATION
  Report Type: Spontaneous
  Country: US (occurrence: None)
  Receive Date: 20150903
  Receipt Date: 20150903
  Transmission Date: 20151125
  Serious: No
  Sender: FDA-Public Use
  Company Number: None

PATIENT
  Age: 52 Year
  Sex: Female

DRUGS (9)
  1. DULOXETINE. [Concomitant]
     Active Substance: DULOXETINE
  2. CLONAZEPAM. [Concomitant]
     Active Substance: CLONAZEPAM
  3. ARIPIPRAZOLE. [Concomitant]
     Active Substance: ARIPIPRAZOLE
  4. TEMAZEPAM. [Concomitant]
     Active Substance: TEMAZEPAM
  5. CARISOPRODOL. [Concomitant]
     Active Substance: CARISOPRODOL
  6. BOSULIF [Suspect]
     Active Substance: BOSUTINIB MONOHYDRATE
     Indication: CHRONIC MYELOID LEUKAEMIA
     Dosage: 500MG QDAY PO
     Route: 048
     Dates: start: 20150821
  7. HYDROCO/APAP [Concomitant]
     Active Substance: ACETAMINOPHEN\HYDROCODONE
  8. FENTANYL. [Concomitant]
     Active Substance: FENTANYL
  9. TRAZODONE [Concomitant]
     Active Substance: TRAZODONE HYDROCHLORIDE

REACTIONS (2)
  - Diarrhoea [None]
  - Abdominal pain [None]

NARRATIVE: CASE EVENT DATE: 201508
